FAERS Safety Report 8248335-9 (Version None)
Quarter: 2012Q1

REPORT INFORMATION
  Report Type: 
  Country: None (occurrence: None)
  Receive Date: 20120330
  Receipt Date: 20120315
  Transmission Date: 20120608
  Serious: Yes (Life-Threatening, Other)
  Sender: FDA-Public Use
  Company Number: US-WATSON-2012-04634

PATIENT
  Sex: Male

DRUGS (3)
  1. DARVOCET [Suspect]
     Indication: PAIN
     Dosage: UNK
     Route: 048
  2. DARVON [Suspect]
     Indication: PAIN
     Dosage: UNK
     Route: 048
  3. PROPOXYPHENE HCL AND ACETAMINOPHEN [Suspect]
     Indication: PAIN
     Dosage: UNK
     Route: 048

REACTIONS (5)
  - ARRHYTHMIA [None]
  - CARDIO-RESPIRATORY ARREST [None]
  - CARDIAC DISORDER [None]
  - CARDIOVASCULAR DISORDER [None]
  - MYOCARDIAL INFARCTION [None]
